FAERS Safety Report 20320655 (Version 8)
Quarter: 2022Q3

REPORT INFORMATION
  Report Type: Spontaneous
  Country: CO (occurrence: CO)
  Receive Date: 20220111
  Receipt Date: 20220713
  Transmission Date: 20221026
  Serious: Yes (Other)
  Sender: FDA-Public Use
  Company Number: CO-GLAXOSMITHKLINE-CO2021AMR260619

PATIENT

DRUGS (6)
  1. NUCALA [Suspect]
     Active Substance: MEPOLIZUMAB
     Indication: Asthma
     Dosage: 100 MG, Z EVERY 28 DAYS
     Route: 058
  2. SERETIDE [Concomitant]
     Active Substance: FLUTICASONE PROPIONATE\SALMETEROL XINAFOATE
     Indication: Product used for unknown indication
     Dosage: UNK
  3. SPIRIVA RESPIMAT [Concomitant]
     Active Substance: TIOTROPIUM BROMIDE
     Indication: Product used for unknown indication
     Dosage: 2 PUFF(S), QD
  4. ALBUTEROL [Concomitant]
     Active Substance: ALBUTEROL
     Indication: Product used for unknown indication
     Dosage: AS NEEDED
  5. ALBUTEROL [Concomitant]
     Active Substance: ALBUTEROL
     Dosage: RESCUE SALBUTAMOL- 2 PUFFS EVERY 10 MINUTES FOR 1 HOUR AND LATER 2 PUFFS EVERY 4 HOURS ACCORDING TO
  6. SYMBICORT [Concomitant]
     Active Substance: BUDESONIDE\FORMOTEROL FUMARATE DIHYDRATE
     Indication: Product used for unknown indication
     Dosage: 1 PUFF(S), BID

REACTIONS (13)
  - Pulmonary fibrosis [Recovering/Resolving]
  - Dyspnoea [Recovering/Resolving]
  - Emphysema [Recovering/Resolving]
  - Malaise [Recovered/Resolved]
  - Asthenia [Recovered/Resolved]
  - Rhinorrhoea [Recovered/Resolved]
  - Headache [Recovered/Resolved]
  - Nasal congestion [Recovered/Resolved]
  - Hypotension [Not Recovered/Not Resolved]
  - Discomfort [Recovered/Resolved]
  - Chills [Recovered/Resolved]
  - Cyanosis [Recovered/Resolved]
  - Product use in unapproved indication [Unknown]

NARRATIVE: CASE EVENT DATE: 20220117
